FAERS Safety Report 8614361 (Version 5)
Quarter: 2014Q2

REPORT INFORMATION
  Report Type: Spontaneous
  Country: US (occurrence: US)
  Receive Date: 20120614
  Receipt Date: 20140618
  Transmission Date: 20141212
  Serious: Yes (Hospitalization)
  Sender: FDA-Public Use
  Company Number: US-ASTRAZENECA-2012SE35576

PATIENT
  Age: 21857 Day
  Sex: Female

DRUGS (28)
  1. NEXIUM [Suspect]
     Indication: GASTROOESOPHAGEAL REFLUX DISEASE
     Route: 048
     Dates: start: 2002
  2. NEXIUM [Suspect]
     Indication: HYPERCHLORHYDRIA
     Route: 048
     Dates: start: 2002
  3. NEXIUM [Suspect]
     Indication: GASTROOESOPHAGEAL REFLUX DISEASE
     Route: 048
     Dates: start: 20030128
  4. NEXIUM [Suspect]
     Indication: HYPERCHLORHYDRIA
     Route: 048
     Dates: start: 20030128
  5. NEXIUM [Suspect]
     Indication: GASTROOESOPHAGEAL REFLUX DISEASE
     Route: 048
     Dates: start: 20050519
  6. NEXIUM [Suspect]
     Indication: HYPERCHLORHYDRIA
     Route: 048
     Dates: start: 20050519
  7. NEXIUM [Suspect]
     Indication: GASTROOESOPHAGEAL REFLUX DISEASE
     Route: 048
     Dates: start: 20130427
  8. NEXIUM [Suspect]
     Indication: HYPERCHLORHYDRIA
     Route: 048
     Dates: start: 20130427
  9. ASPIRIN [Concomitant]
  10. ONGLYZA [Concomitant]
     Indication: BLOOD GLUCOSE ABNORMAL
  11. MECLIZINE [Concomitant]
     Indication: EAR DISORDER
  12. RAMIPRIL [Concomitant]
  13. ZOLPIDEM [Concomitant]
     Indication: SLEEP DISORDER
  14. CITRACAL [Concomitant]
  15. FISH OIL [Concomitant]
     Dosage: ONE A DAY
  16. METFORMIN [Concomitant]
     Indication: BLOOD GLUCOSE ABNORMAL
  17. GABAPENTIN [Concomitant]
     Indication: NERVE INJURY
  18. VIIBRYD [Concomitant]
     Indication: NERVOUS SYSTEM DISORDER
  19. FENOFIBRATE [Concomitant]
     Indication: BLOOD CHOLESTEROL ABNORMAL
  20. CLORAZEPATE [Concomitant]
     Indication: NERVOUS SYSTEM DISORDER
  21. CYCLOBENZAPRINE [Concomitant]
  22. DIAZEPAM [Concomitant]
     Indication: ANXIETY
  23. LEXAPRO [Concomitant]
  24. ACYCLOVIR [Concomitant]
  25. ATORVASTATIN [Concomitant]
     Dates: start: 20120402
  26. ACTOS [Concomitant]
  27. WELLBUTRIN XL [Concomitant]
  28. TYLENOL [Concomitant]
     Route: 048

REACTIONS (10)
  - Chest pain [Unknown]
  - Osteoporosis [Unknown]
  - Multiple fractures [Unknown]
  - Limb injury [Unknown]
  - Foot fracture [Unknown]
  - Hand fracture [Unknown]
  - Fall [Unknown]
  - Cataract [Unknown]
  - Accident [Unknown]
  - Limb injury [Unknown]
